FAERS Safety Report 14248961 (Version 5)
Quarter: 2018Q2

REPORT INFORMATION
  Report Type: Spontaneous
  Country: GR (occurrence: GR)
  Receive Date: 20171204
  Receipt Date: 20180522
  Transmission Date: 20180711
  Serious: Yes (Hospitalization, Other)
  Sender: FDA-Public Use
  Company Number: GR-MYLANLABS-2017M1075154

PATIENT
  Age: 49 Year
  Sex: Male
  Weight: 107 kg

DRUGS (36)
  1. ROCURONIUM [Suspect]
     Active Substance: ROCURONIUM BROMIDE
     Indication: INDUCTION OF ANAESTHESIA
  2. MIDAZOLAM [Suspect]
     Active Substance: MIDAZOLAM HYDROCHLORIDE
     Indication: ANAESTHESIA
     Dosage: 2 MG, UNK
     Route: 042
  3. IPRATROPIUM BROMIDE. [Concomitant]
     Active Substance: IPRATROPIUM BROMIDE
     Indication: PREMEDICATION
     Dosage: ADDITIONAL INFO: 1 H BEFORE SURGERY
  4. SALBUTAMOL SULFATE [Concomitant]
     Active Substance: ALBUTEROL SULFATE
     Dosage: UNK, TOTAL
     Route: 065
  5. SALBUTAMOL SULFATE [Concomitant]
     Active Substance: ALBUTEROL SULFATE
     Dosage: DOSE 10 PUFFS OF SALBUTAMOL SPACER - 100MCG/DOSE DOSE:10 PUFF(S)
     Route: 065
  6. BUDESONIDE. [Concomitant]
     Active Substance: BUDESONIDE
     Indication: BRONCHOSPASM
     Dosage: 2UNK, QD
     Route: 065
  7. LIDOCAINE. [Suspect]
     Active Substance: LIDOCAINE
     Indication: INDUCTION OF ANAESTHESIA
  8. SEVOFLURANE. [Suspect]
     Active Substance: SEVOFLURANE
     Indication: MAINTENANCE OF ANAESTHESIA
     Dosage: UNK
  9. IPRATROPIUM BROMIDE. [Concomitant]
     Active Substance: IPRATROPIUM BROMIDE
     Indication: ANAESTHETIC PREMEDICATION
     Route: 065
  10. SALBUTAMOL SULFATE [Concomitant]
     Active Substance: ALBUTEROL SULFATE
     Indication: BRONCHOSPASM
     Dosage: UNK, TOTAL
  11. KETAMINE [Suspect]
     Active Substance: KETAMINE
     Dosage: 2 MG/KG, QH
     Route: 042
  12. RANITIDINE. [Suspect]
     Active Substance: RANITIDINE
     Indication: PRODUCT USED FOR UNKNOWN INDICATION
     Dosage: 50 MG, UNK
     Route: 042
  13. SALBUTAMOL SULFATE [Concomitant]
     Active Substance: ALBUTEROL SULFATE
     Dosage: DOSE 10 PUFFS OF SALBUTAMOL SPACER - 100MCG/DOSE DOSE:10 PUFF(S)
     Route: 065
  14. BUDESONIDE. [Concomitant]
     Active Substance: BUDESONIDE
     Indication: ANAESTHETIC PREMEDICATION
     Dosage: 2UNK, QD
     Route: 065
  15. FENTANYL. [Suspect]
     Active Substance: FENTANYL
     Indication: GENERAL ANAESTHESIA
  16. MIDAZOLAM [Suspect]
     Active Substance: MIDAZOLAM HYDROCHLORIDE
     Indication: GENERAL ANAESTHESIA
  17. DIAZEPAM. [Concomitant]
     Active Substance: DIAZEPAM
     Indication: ANAESTHETIC PREMEDICATION
  18. KETAMINE [Suspect]
     Active Substance: KETAMINE
     Indication: BRONCHOSPASM
     Dosage: 20 MG, TWO BOLUS DOSES
     Route: 042
  19. ROCURONIUM [Suspect]
     Active Substance: ROCURONIUM BROMIDE
     Indication: GENERAL ANAESTHESIA
     Dosage: 70 MG, TOTAL
  20. PROPOFOL. [Suspect]
     Active Substance: PROPOFOL
     Indication: INDUCTION OF ANAESTHESIA
     Dosage: 200 MG, TOTAL
     Route: 042
  21. MIDAZOLAM [Suspect]
     Active Substance: MIDAZOLAM HYDROCHLORIDE
     Indication: MAINTENANCE OF ANAESTHESIA
  22. SALBUTAMOL SULFATE [Concomitant]
     Active Substance: ALBUTEROL SULFATE
     Indication: ANAESTHETIC PREMEDICATION
     Dosage: UNK
     Route: 065
  23. ADRENALINE                         /00003901/ [Concomitant]
     Active Substance: EPINEPHRINE
     Indication: WHEEZING
     Dosage: 3 MG, UNK
     Route: 042
  24. MAGNESIUM [Suspect]
     Active Substance: MAGNESIUM
     Indication: BRONCHOSPASM
     Dosage: 2 G, UNK
     Route: 042
  25. BUDESONIDE. [Concomitant]
     Active Substance: BUDESONIDE
     Indication: PREMEDICATION
     Dosage: ADDITIONAL INFO: 1 H BEFORE SURGERYUNK
  26. HYDROCORTISONE. [Concomitant]
     Active Substance: HYDROCORTISONE
     Indication: PRODUCT USED FOR UNKNOWN INDICATION
     Dosage: 200 MG, UNK
  27. FENTANYL. [Suspect]
     Active Substance: FENTANYL
     Indication: INDUCTION OF ANAESTHESIA
     Dosage: 0.25 MG, UNK
     Route: 042
  28. PROPOFOL. [Suspect]
     Active Substance: PROPOFOL
     Indication: GENERAL ANAESTHESIA
  29. DIAZEPAM. [Concomitant]
     Active Substance: DIAZEPAM
     Indication: PREMEDICATION
     Dosage: ADDITIONAL INFO: 1 H BEFORE SURGERY
     Route: 048
  30. SALBUTAMOL SULFATE [Concomitant]
     Active Substance: ALBUTEROL SULFATE
     Dosage: ADDITIONAL INFO: 1 H BEFORE SURGERY
     Route: 055
  31. SODIUM LACTATE COMPOUND [Concomitant]
     Active Substance: CALCIUM CHLORIDE\POTASSIUM CHLORIDE\SODIUM CHLORIDE\SODIUM LACTATE
     Indication: PRODUCT USED FOR UNKNOWN INDICATION
  32. LIDOCAINE. [Suspect]
     Active Substance: LIDOCAINE
     Indication: GENERAL ANAESTHESIA
     Dosage: 100 MG, TOTAL
  33. MIDAZOLAM [Suspect]
     Active Substance: MIDAZOLAM HYDROCHLORIDE
     Indication: GENERAL ANAESTHESIA
  34. IPRATROPIUM BROMIDE. [Concomitant]
     Active Substance: IPRATROPIUM BROMIDE
     Indication: BRONCHOSPASM
  35. SALBUTAMOL SULFATE [Concomitant]
     Active Substance: ALBUTEROL SULFATE
     Indication: PREMEDICATION
     Dosage: UNK
     Route: 065
  36. DIMETINDENE MALEATE [Concomitant]
     Active Substance: DIMETHINDENE MALEATE
     Indication: PRODUCT USED FOR UNKNOWN INDICATION
     Dosage: 4MG/100ML
     Route: 042

REACTIONS (5)
  - Hypersensitivity [Recovered/Resolved]
  - Blood pressure decreased [Recovered/Resolved]
  - Bronchospasm [Recovered/Resolved]
  - Flushing [Recovered/Resolved]
  - Hypotension [Recovered/Resolved]
